FAERS Safety Report 15916263 (Version 1)
Quarter: 2019Q1

REPORT INFORMATION
  Report Type: Spontaneous
  Country: US (occurrence: US)
  Receive Date: 20190205
  Receipt Date: 20190205
  Transmission Date: 20190417
  Serious: No
  Sender: FDA-Public Use
  Company Number: None

PATIENT
  Age: 77 Year
  Sex: Female
  Weight: 47.7 kg

DRUGS (11)
  1. VITAMIN D [Concomitant]
     Active Substance: CHOLECALCIFEROL
  2. ALECENSA [Suspect]
     Active Substance: ALECTINIB HYDROCHLORIDE
     Indication: ALK GENE REARRANGEMENT POSITIVE
     Route: 048
     Dates: start: 20180727
  3. LORATADINE. [Concomitant]
     Active Substance: LORATADINE
  4. CALCIUM [Concomitant]
     Active Substance: CALCIUM
  5. GINKGO [Concomitant]
     Active Substance: GINKGO
  6. JANUVIA [Concomitant]
     Active Substance: SITAGLIPTIN PHOSPHATE
  7. GABAPENTIN. [Concomitant]
     Active Substance: GABAPENTIN
  8. GLUCOPHAGE [Concomitant]
     Active Substance: METFORMIN HYDROCHLORIDE
  9. GLUCOSAMINE [Concomitant]
     Active Substance: GLUCOSAMINE
  10. ALECENSA [Suspect]
     Active Substance: ALECTINIB HYDROCHLORIDE
     Indication: NON-SMALL CELL LUNG CANCER
     Route: 048
     Dates: start: 20180727
  11. ADVIL [Concomitant]
     Active Substance: IBUPROFEN

REACTIONS (4)
  - Nausea [None]
  - Choking [None]
  - Diarrhoea [None]
  - Constipation [None]

NARRATIVE: CASE EVENT DATE: 20181201
